FAERS Safety Report 16726159 (Version 2)
Quarter: 2019Q3

REPORT INFORMATION
  Report Type: Spontaneous
  Country: US (occurrence: US)
  Receive Date: 20190821
  Receipt Date: 20190822
  Transmission Date: 20191005
  Serious: Yes (Hospitalization, Other)
  Sender: FDA-Public Use
  Company Number: US-ASTRAZENECA-2019SF16657

PATIENT
  Sex: Female

DRUGS (28)
  1. JAKAFI [Suspect]
     Active Substance: RUXOLITINIB
     Indication: POLYCYTHAEMIA VERA
     Route: 048
  2. JAKAFI [Suspect]
     Active Substance: RUXOLITINIB
     Indication: POLYCYTHAEMIA VERA
     Route: 048
  3. ALLOPURINOL. [Concomitant]
     Active Substance: ALLOPURINOL
  4. VITAMIN C [Concomitant]
     Active Substance: ASCORBIC ACID
  5. NITROGLYCERIN. [Concomitant]
     Active Substance: NITROGLYCERIN
  6. JAKAFI [Suspect]
     Active Substance: RUXOLITINIB
     Indication: MYELOFIBROSIS
     Route: 048
     Dates: start: 20170527
  7. ZETIA [Concomitant]
     Active Substance: EZETIMIBE
  8. ASPIRIN. [Concomitant]
     Active Substance: ASPIRIN
  9. LATANOPROST. [Concomitant]
     Active Substance: LATANOPROST
  10. SODIUM CHLORIDE SOLUTION [Concomitant]
     Active Substance: SODIUM CHLORIDE
  11. FLONASE [Concomitant]
     Active Substance: FLUTICASONE PROPIONATE
  12. HCTZ [Suspect]
     Active Substance: HYDROCHLOROTHIAZIDE
     Route: 065
  13. JAKAFI [Suspect]
     Active Substance: RUXOLITINIB
     Indication: MYELOFIBROSIS
     Route: 048
  14. TIMOLOL. [Concomitant]
     Active Substance: TIMOLOL
  15. HYDROXYUREA. [Concomitant]
     Active Substance: HYDROXYUREA
  16. ENALAPRIL [Concomitant]
     Active Substance: ENALAPRIL
  17. MAGNESIUM [Concomitant]
     Active Substance: MAGNESIUM
  18. MTOPROLOL TARTARATE [Suspect]
     Active Substance: METOPROLOL TARTRATE
     Route: 065
  19. BRILINTA [Suspect]
     Active Substance: TICAGRELOR
     Indication: PRODUCT USED FOR UNKNOWN INDICATION
     Route: 048
  20. JAKAFI [Suspect]
     Active Substance: RUXOLITINIB
     Indication: POLYCYTHAEMIA VERA
     Route: 048
     Dates: start: 20170527
  21. VITAMIN D2 [Concomitant]
     Active Substance: ERGOCALCIFEROL
  22. JAKAFI [Suspect]
     Active Substance: RUXOLITINIB
     Indication: MYELOFIBROSIS
     Route: 048
  23. LUMIGAN [Concomitant]
     Active Substance: BIMATOPROST
  24. METFORMIN [Concomitant]
     Active Substance: METFORMIN HYDROCHLORIDE
  25. DORZOLAMIDE [Concomitant]
     Active Substance: DORZOLAMIDE
  26. AZOPT [Concomitant]
     Active Substance: BRINZOLAMIDE
  27. VITAMIN D [Concomitant]
     Active Substance: VITAMIN D NOS
  28. MAGNESIUM OXIDE. [Concomitant]
     Active Substance: MAGNESIUM OXIDE

REACTIONS (36)
  - Scratch [Unknown]
  - Neuropathy peripheral [Unknown]
  - Musculoskeletal chest pain [Unknown]
  - Pain in jaw [Unknown]
  - Incorrect dose administered [Unknown]
  - Anaemia [Unknown]
  - Oedema peripheral [Unknown]
  - Headache [Unknown]
  - Diarrhoea [Unknown]
  - Myocardial infarction [Unknown]
  - Blood cholesterol increased [Unknown]
  - Vertigo [Unknown]
  - Bronchitis [Unknown]
  - Carpal tunnel syndrome [Unknown]
  - Nasopharyngitis [Unknown]
  - Bone pain [Unknown]
  - Migraine with aura [Unknown]
  - Blood count abnormal [Unknown]
  - Dizziness [Unknown]
  - Haemorrhage [Unknown]
  - Pain in extremity [Unknown]
  - Weight decreased [Unknown]
  - Hepatic steatosis [Unknown]
  - White blood cell count decreased [Unknown]
  - Hypertension [Unknown]
  - Insomnia [Unknown]
  - Renal disorder [Unknown]
  - Back pain [Unknown]
  - Haemoglobin decreased [Unknown]
  - Sleep apnoea syndrome [Unknown]
  - Hot flush [Unknown]
  - Precancerous skin lesion [Unknown]
  - Glaucoma [Unknown]
  - Platelet count increased [Unknown]
  - Haematocrit decreased [Unknown]
  - Night sweats [Unknown]
